FAERS Safety Report 15401879 (Version 1)
Quarter: 2018Q3

REPORT INFORMATION
  Report Type: Spontaneous
  Country: BR (occurrence: BR)
  Receive Date: 20180919
  Receipt Date: 20180919
  Transmission Date: 20181010
  Serious: Yes (Other)
  Sender: FDA-Public Use
  Company Number: BR-TORRENT-00004581

PATIENT
  Age: 70 Year
  Sex: Female

DRUGS (2)
  1. LORAX [Concomitant]
     Active Substance: LORAZEPAM
     Indication: INSOMNIA
     Dosage: 2 MG ONE TABLET AND A HALF
  2. LOREDON [Suspect]
     Active Substance: TRAZODONE HYDROCHLORIDE
     Indication: DETOXIFICATION
     Dosage: UNKNOWN
     Route: 048
     Dates: start: 201807, end: 201808

REACTIONS (4)
  - Renal disorder [Unknown]
  - Anuria [Unknown]
  - Fatigue [Unknown]
  - Off label use [Unknown]
